FAERS Safety Report 20246301 (Version 1)
Quarter: 2021Q4

REPORT INFORMATION
  Report Type: Report from Study
  Country: FR (occurrence: FR)
  Receive Date: 20211229
  Receipt Date: 20211229
  Transmission Date: 20220303
  Serious: Yes (Other)
  Sender: FDA-Public Use
  Company Number: FR-TEVA-2021-FR-1994342

PATIENT
  Age: 47 Year
  Sex: Male

DRUGS (2)
  1. AMISULPRIDE [Interacting]
     Active Substance: AMISULPRIDE
     Indication: Anxiety disorder
     Route: 065
  2. CABERGOLINE [Interacting]
     Active Substance: CABERGOLINE
     Indication: Prolactin-producing pituitary tumour
     Route: 065

REACTIONS (2)
  - Drug interaction [Unknown]
  - Therapeutic product effect decreased [Unknown]
